FAERS Safety Report 7640711-8 (Version None)
Quarter: 2011Q3

REPORT INFORMATION
  Report Type: 
  Country: None (occurrence: None)
  Receive Date: 20110728
  Receipt Date: 20110714
  Transmission Date: 20111222
  Serious: Yes (Other)
  Sender: FDA-Public Use
  Company Number: US-RANBAXY-2010RR-38603

PATIENT
  Sex: Female

DRUGS (11)
  1. PREDNISOLONE [Suspect]
     Indication: PRODUCT USED FOR UNKNOWN INDICATION
     Dosage: UNK
     Route: 048
     Dates: start: 19980101
  2. LEVAQUIN [Suspect]
     Dosage: 500 MG, QD
     Route: 065
     Dates: start: 20001211, end: 20001217
  3. LEVAQUIN [Suspect]
     Dosage: 500 MG, QD
     Route: 065
     Dates: start: 20030212, end: 20030218
  4. LEVAQUIN [Suspect]
     Dosage: 500 MG, QD
     Route: 065
     Dates: start: 20000605, end: 20000614
  5. METHYLPREDNISOLONE [Suspect]
     Indication: PRODUCT USED FOR UNKNOWN INDICATION
     Dosage: 4 MG, UNK
     Route: 065
     Dates: end: 19990119
  6. PREDNISOLONE [Suspect]
     Dosage: 10 MG, UNK
     Dates: start: 20000229
  7. LEVAQUIN [Suspect]
     Dosage: 500 MG, QD
     Route: 065
     Dates: start: 20000518, end: 20000527
  8. LEVAQUIN [Suspect]
     Dosage: 500 MG, QD
     Route: 065
     Dates: start: 20031226, end: 20040101
  9. CIPROFLOXACIN [Suspect]
     Indication: PRODUCT USED FOR UNKNOWN INDICATION
     Dosage: UNK
     Route: 065
     Dates: start: 20011001
  10. LEVAQUIN [Suspect]
     Indication: UPPER RESPIRATORY TRACT INFECTION
     Dosage: 500 MG, QD
     Route: 048
     Dates: start: 20000229, end: 20000304
  11. LEVAQUIN [Suspect]
     Dosage: 500 MG, QD
     Route: 065
     Dates: start: 20011110, end: 20011118

REACTIONS (2)
  - TENDON RUPTURE [None]
  - TENDON DISORDER [None]
